FAERS Safety Report 25330637 (Version 2)
Quarter: 2025Q2

REPORT INFORMATION
  Report Type: Spontaneous
  Country: FI (occurrence: FI)
  Receive Date: 20250519
  Receipt Date: 20250526
  Transmission Date: 20250717
  Serious: Yes (Other)
  Sender: SANOFI AVENTIS
  Company Number: None

PATIENT
  Sex: Male
  Weight: 2.22 kg

DRUGS (14)
  1. ENOXAPARIN SODIUM [Suspect]
     Active Substance: ENOXAPARIN SODIUM
     Indication: Haemorrhage intracranial
     Dosage: 40 MG, BID
     Route: 064
     Dates: start: 20120729
  2. ENOXAPARIN SODIUM [Suspect]
     Active Substance: ENOXAPARIN SODIUM
     Dosage: 60 MG, BID
     Route: 064
  3. ENOXAPARIN SODIUM [Suspect]
     Active Substance: ENOXAPARIN SODIUM
  4. ENOXAPARIN SODIUM [Suspect]
     Active Substance: ENOXAPARIN SODIUM
     Dosage: 80 MG, QD
     Route: 063
  5. LEVETIRACETAM [Suspect]
     Active Substance: LEVETIRACETAM
     Indication: Partial seizures
     Dosage: 1000 MG, BID
     Route: 064
  6. LEVETIRACETAM [Suspect]
     Active Substance: LEVETIRACETAM
     Indication: Seizure
     Route: 064
  7. LEVETIRACETAM [Suspect]
     Active Substance: LEVETIRACETAM
     Route: 063
  8. LEVETIRACETAM [Suspect]
     Active Substance: LEVETIRACETAM
     Route: 063
  9. LACOSAMIDE [Suspect]
     Active Substance: LACOSAMIDE
     Indication: Seizure
     Dosage: 100 MG, BID
     Route: 063
     Dates: start: 20120730
  10. LACOSAMIDE [Suspect]
     Active Substance: LACOSAMIDE
     Route: 063
  11. LACOSAMIDE [Suspect]
     Active Substance: LACOSAMIDE
     Dosage: 150 MG, BID
     Route: 064
  12. LACOSAMIDE [Suspect]
     Active Substance: LACOSAMIDE
     Dosage: 300 MG, BID
     Route: 064
     Dates: start: 20120730
  13. LABETALOL [Suspect]
     Active Substance: LABETALOL
     Indication: Hypertension
     Dosage: 100 MG, BID
     Route: 064
     Dates: start: 20120817, end: 20130206
  14. LABETALOL [Suspect]
     Active Substance: LABETALOL
     Dosage: 100 MG, BID
     Route: 063

REACTIONS (5)
  - Premature baby [Unknown]
  - Feeding disorder [Recovered/Resolved]
  - Somnolence [Recovered/Resolved]
  - Exposure via breast milk [Unknown]
  - Foetal exposure during pregnancy [Unknown]

NARRATIVE: CASE EVENT DATE: 20120701
